FAERS Safety Report 25954744 (Version 1)
Quarter: 2025Q4

REPORT INFORMATION
  Report Type: Report from Study
  Country: US (occurrence: US)
  Receive Date: 20251024
  Receipt Date: 20251024
  Transmission Date: 20260117
  Serious: Yes (Other)
  Sender: Pyros Pharmaceuticals
  Company Number: US-PYROS PHARMACEUTICALS, INC-20251001321

PATIENT
  Sex: Female

DRUGS (1)
  1. VIGAFYDE [Suspect]
     Active Substance: VIGABATRIN
     Indication: Congenital central nervous system anomaly
     Dosage: 500 MG, BID (5 ML)
     Route: 048
     Dates: start: 20250725

REACTIONS (2)
  - Neoplasm [Unknown]
  - Crying [Unknown]

NARRATIVE: CASE EVENT DATE: 20250101
